FAERS Safety Report 8381015-8 (Version None)
Quarter: 2012Q2

REPORT INFORMATION
  Report Type: 
  Country: None (occurrence: None)
  Receive Date: 20120511
  Receipt Date: 20120503
  Transmission Date: 20120825
  Serious: Yes (Congenital Anomaly, Other)
  Sender: FDA-Public Use
  Company Number: AEGBR201200235

PATIENT
  Age: 32 Year
  Sex: Female
  Weight: 80 kg

DRUGS (5)
  1. INTRALIPID /01648802/ (GLYCINE MAX SEED OIL) [Suspect]
     Indication: PARENTERAL NUTRITION
     Dosage: IV
     Route: 042
  2. ASPIRIN [Concomitant]
  3. CYCLOGEST [Concomitant]
  4. IMMUNE GLOBULIN INTRAVENOUS (HUMAN) [Suspect]
     Indication: PRODUCT USED FOR UNKNOWN INDICATION
     Dosage: IV
     Route: 042
  5. PREDNISOLONE [Concomitant]

REACTIONS (2)
  - FOETAL DEATH [None]
  - MATERNAL EXPOSURE DURING PREGNANCY [None]
